FAERS Safety Report 9422940 (Version 1)
Quarter: 2013Q3

REPORT INFORMATION
  Report Type: Spontaneous
  Country: DK (occurrence: DK)
  Receive Date: 20130726
  Receipt Date: 20130726
  Transmission Date: 20140515
  Serious: Yes (Other)
  Sender: FDA-Public Use
  Company Number: DK-ACTAVIS-2013-12738

PATIENT
  Sex: Male
  Weight: 1 kg

DRUGS (2)
  1. BETAMETHASONE (UNKNOWN) [Suspect]
     Indication: PRODUCT USED FOR UNKNOWN INDICATION
     Dosage: UNK
     Route: 064
  2. PROCAINE BENZYLPEN [Suspect]
     Indication: SYPHILIS
     Dosage: 600000 IU, SINGLE
     Route: 064

REACTIONS (2)
  - Cerebral hypoperfusion [Unknown]
  - Foetal exposure during pregnancy [Unknown]
